FAERS Safety Report 15446353 (Version 4)
Quarter: 2018Q4

REPORT INFORMATION
  Report Type: Report from Study
  Country: ES (occurrence: ES)
  Receive Date: 20180928
  Receipt Date: 20181226
  Transmission Date: 20190204
  Serious: Yes (Hospitalization)
  Sender: FDA-Public Use
  Company Number: ES-PFIZER INC-2018386893

PATIENT
  Age: 77 Year
  Sex: Female
  Weight: 57 kg

DRUGS (20)
  1. CALCIUM FOLINATE [Suspect]
     Active Substance: LEUCOVORIN CALCIUM
     Indication: PANCREATIC CARCINOMA METASTATIC
     Dosage: 620 MG, CYCLIC
     Route: 042
     Dates: start: 20180801, end: 20180801
  2. FLUOROURACIL. [Suspect]
     Active Substance: FLUOROURACIL
     Indication: PANCREATIC CARCINOMA METASTATIC
     Dosage: 620 MG, CYCLICAL; IV BOLUS
     Route: 040
     Dates: start: 20180801, end: 20180803
  3. HIBOR [Concomitant]
     Active Substance: BEMIPARIN SODIUM
     Dosage: UNK
     Dates: start: 20180711
  4. HYDROCHLOROTHIAZIDE. [Concomitant]
     Active Substance: HYDROCHLOROTHIAZIDE
  5. RANITIDINA [RANITIDINE] [Concomitant]
     Dosage: UNK
     Dates: start: 20180801
  6. OMEPRAZOL [Concomitant]
     Active Substance: OMEPRAZOLE
     Dosage: UNK
     Dates: start: 20180307
  7. SIMVASTATINA [Concomitant]
     Active Substance: SIMVASTATIN
  8. ONDANSETRON [Concomitant]
     Active Substance: ONDANSETRON
     Dosage: UNK
     Dates: start: 20180801
  9. METFORMINA [METFORMIN] [Concomitant]
  10. EUTIROX [Concomitant]
     Active Substance: LEVOTHYROXINE SODIUM
  11. PARACETAMOL [Concomitant]
     Active Substance: ACETAMINOPHEN
     Dosage: UNK
     Dates: start: 20180801
  12. FENTANYL. [Suspect]
     Active Substance: FENTANYL
     Dosage: INCREASE TO 50 UG, UNK
     Route: 062
     Dates: start: 20180802
  13. ZYLORIC [Concomitant]
     Active Substance: ALLOPURINOL
  14. DEXCLORFENIRAMINA [Concomitant]
     Active Substance: DEXCHLORPHENIRAMINE
     Dosage: UNK
     Dates: start: 20180801
  15. OXALIPLATIN. [Suspect]
     Active Substance: OXALIPLATIN
     Indication: PANCREATIC CARCINOMA METASTATIC
     Dosage: 132 MG, CYCLIC
     Route: 042
     Dates: start: 20180801, end: 20180801
  16. FENTANYL. [Suspect]
     Active Substance: FENTANYL
     Indication: PAIN
     Dosage: UNK
  17. FENTANILO [FENTANYL] [Concomitant]
     Dosage: UNK
     Dates: start: 20180725
  18. ADIRO [Concomitant]
     Active Substance: ASPIRIN
  19. DEXAMETHASONE. [Concomitant]
     Active Substance: DEXAMETHASONE
     Dosage: UNK
     Dates: start: 20180801
  20. FLUOROURACIL. [Suspect]
     Active Substance: FLUOROURACIL
     Dosage: 3720 MG, CYCLICAL; INTRAVENOUS
     Route: 042
     Dates: start: 20180801, end: 20180803

REACTIONS (2)
  - General physical health deterioration [Recovered/Resolved]
  - Vomiting [Recovered/Resolved]

NARRATIVE: CASE EVENT DATE: 20180803
